FAERS Safety Report 17557686 (Version 1)
Quarter: 2020Q1

REPORT INFORMATION
  Report Type: Spontaneous
  Country: FR (occurrence: FR)
  Receive Date: 20200318
  Receipt Date: 20200318
  Transmission Date: 20200409
  Serious: Yes (Hospitalization)
  Sender: FDA-Public Use
  Company Number: FR-TEVA-2020-FR-1202906

PATIENT
  Age: 87 Year
  Sex: Female

DRUGS (17)
  1. FUROSEMIDE. [Concomitant]
     Active Substance: FUROSEMIDE
  2. NOVORAPID [Concomitant]
     Active Substance: INSULIN ASPART
  3. FORLAX 10 G, POUDRE POUR SOLUTION BUVABLE EN SACHET-DOSE [Concomitant]
     Active Substance: POLYETHYLENE GLYCOL 4000
  4. ELIQUIS [Concomitant]
     Active Substance: APIXABAN
  5. SEBIPROX [Concomitant]
     Active Substance: CICLOPIROX OLAMINE
  6. VOGALENE [Concomitant]
     Active Substance: METOPIMAZINE
  7. EUPANTOL [Concomitant]
     Active Substance: PANTOPRAZOLE SODIUM
  8. NAPROXENE [Suspect]
     Active Substance: NAPROXEN
     Indication: ARTHRALGIA
     Route: 048
     Dates: start: 202002
  9. TOUJEO [Concomitant]
     Active Substance: INSULIN GLARGINE
  10. HALDOL [Concomitant]
     Active Substance: HALOPERIDOL
  11. LANSOYL [Concomitant]
     Active Substance: MINERAL OIL
  12. PROPRANOLOL [Concomitant]
     Active Substance: PROPRANOLOL HYDROCHLORIDE
  13. UVEDOSE 100 000 UI, SOLUTION BUVABLE EN AMPOULE [Concomitant]
     Active Substance: CHOLECALCIFEROL
  14. TAHOR [Concomitant]
     Active Substance: ATORVASTATIN CALCIUM
  15. TOVIAZ [Concomitant]
     Active Substance: FESOTERODINE FUMARATE
  16. DOLIPRANE [Concomitant]
     Active Substance: ACETAMINOPHEN
  17. ATHYMIL 10 MG, COMPRIME PELLICULE [Concomitant]

REACTIONS (2)
  - Hepatitis [Recovering/Resolving]
  - Acute kidney injury [Recovered/Resolved]

NARRATIVE: CASE EVENT DATE: 20200210
